FAERS Safety Report 4872453-6 (Version None)
Quarter: 2006Q1

REPORT INFORMATION
  Report Type: 
  Country: None (occurrence: None)
  Receive Date: 20060104
  Receipt Date: 20050105
  Transmission Date: 20060701
  Serious: Yes (Death, Hospitalization)
  Sender: FDA-Public Use
  Company Number: US-MERCK-0501USA00616

PATIENT
  Age: 63 Year
  Sex: Male
  Weight: 93 kg

DRUGS (1)
  1. VIOXX [Suspect]
     Indication: RHEUMATOID ARTHRITIS
     Route: 048
     Dates: start: 19991229, end: 20040910

REACTIONS (13)
  - AMNESIA [None]
  - ANXIETY [None]
  - CARDIAC FAILURE [None]
  - CELLULITIS [None]
  - DELIRIUM [None]
  - LOWER GASTROINTESTINAL HAEMORRHAGE [None]
  - PAIN [None]
  - PEPTIC ULCER [None]
  - RESPIRATORY FAILURE [None]
  - TENDON RUPTURE [None]
  - ULCER [None]
  - UPPER GASTROINTESTINAL HAEMORRHAGE [None]
  - WOUND [None]
